FAERS Safety Report 10197978 (Version 1)
Quarter: 2014Q2

REPORT INFORMATION
  Report Type: Spontaneous
  Country: US (occurrence: None)
  Receive Date: 20140523
  Receipt Date: 20140523
  Transmission Date: 20141212
  Serious: No
  Sender: FDA-Public Use
  Company Number: None

PATIENT
  Age: 72 Year
  Sex: Male
  Weight: 68.04 kg

DRUGS (5)
  1. SALINE NASAL SPRAY [Suspect]
     Route: 045
     Dates: start: 20140414, end: 20140414
  2. METOPROLOL [Concomitant]
  3. ECOTRIN [Concomitant]
  4. FINASTERIDE [Concomitant]
  5. LIPITOR [Concomitant]

REACTIONS (2)
  - Product formulation issue [None]
  - Product label issue [None]
